FAERS Safety Report 6717892 (Version 2)
Quarter: 2020Q3

REPORT INFORMATION
  Report Type: Report from Study
  Country: US (occurrence: US)
  Receive Date: 20080804
  Receipt Date: 20090427
  Transmission Date: 20201104
  Serious: Yes (Hospitalization)
  Sender: FDA-Public Use
  Company Number: US-ROCHE-577611

PATIENT
  Age: 62 Year
  Sex: Female
  Weight: 120 kg

DRUGS (1)
  1. IBANDRONIC ACID. [Suspect]
     Active Substance: IBANDRONIC ACID
     Dosage: DOSE ADMINISTERED FOR 3 YEARS;TOTAL DOSE ADM: 13700 MG
     Route: 048
     Dates: start: 20060704

REACTIONS (1)
  - Cerebral ischaemia [Recovered/Resolved]

NARRATIVE: CASE EVENT DATE: 20090412
